FAERS Safety Report 5505165-6 (Version None)
Quarter: 2007Q4

REPORT INFORMATION
  Report Type: 
  Country: None (occurrence: None)
  Receive Date: 20071031
  Receipt Date: 20071024
  Transmission Date: 20080405
  Serious: Yes (Death, Life-Threatening, Hospitalization)
  Sender: FDA-Public Use
  Company Number: T07-USA-03038-01

PATIENT
  Age: 70 Year
  Sex: Female
  Weight: 77.3837 kg

DRUGS (14)
  1. MEMANTINE HCL [Suspect]
     Indication: DEMENTIA ALZHEIMER'S TYPE
     Dosage: 28 MG QD;PO
     Route: 048
     Dates: start: 20070111, end: 20070715
  2. ARICEPT [Concomitant]
  3. CALTRATE + D [Concomitant]
  4. CELEXA [Concomitant]
  5. FOLBIC [Concomitant]
  6. IRON [Concomitant]
  7. MULTIVATAMINS [Concomitant]
  8. PLAQUENIL [Concomitant]
  9. VITAMIN E /GFR/ (VEGETABILE OIL) [Concomitant]
  10. SYNTHROID [Concomitant]
  11. ENULOSE [Concomitant]
  12. LORATADINE [Concomitant]
  13. FOLIC ACID [Concomitant]
  14. ZYRTEC [Concomitant]

REACTIONS (24)
  - ANOXIC ENCEPHALOPATHY [None]
  - AORTIC THROMBOSIS [None]
  - ASPIRATION [None]
  - BLOOD GLUCOSE INCREASED [None]
  - BLOOD PHOSPHORUS INCREASED [None]
  - BRONCHOPNEUMONIA [None]
  - CARDIAC ARREST [None]
  - CARDIO-RESPIRATORY ARREST [None]
  - CEREBELLAR ATROPHY [None]
  - CYANOSIS [None]
  - DISEASE RECURRENCE [None]
  - HEPATIC CONGESTION [None]
  - HYPOTENSION [None]
  - LARGE INTESTINAL ULCER [None]
  - LARYNGEAL ULCERATION [None]
  - LOSS OF CONSCIOUSNESS [None]
  - NEPHROSCLEROSIS [None]
  - OLIGURIA [None]
  - RHONCHI [None]
  - THYROID DISORDER [None]
  - URINE KETONE BODY PRESENT [None]
  - VENTRICULAR FIBRILLATION [None]
  - VENTRICULAR TACHYCARDIA [None]
  - WHITE BLOOD CELL COUNT INCREASED [None]
